FAERS Safety Report 4618256-9 (Version None)
Quarter: 2005Q1

REPORT INFORMATION
  Report Type: 
  Country: None (occurrence: None)
  Receive Date: 20050323
  Receipt Date: 20041215
  Transmission Date: 20050727
  Serious: Yes (Life-Threatening)
  Sender: FDA-Public Use
  Company Number: 2004-123364-NL

PATIENT
  Age: 77 Year
  Sex: Male

DRUGS (9)
  1. ROCURONIUM BROMIDE [Suspect]
     Indication: ANAESTHESIA
     Dosage: 40 MG ONCE INTRAVENOUS (NOS)
     Route: 042
  2. REMIFENTANIL [Concomitant]
  3. SEVOFLURANE [Concomitant]
  4. MIDAZOLAM HCL [Concomitant]
  5. ATROPINE [Concomitant]
  6. PROPOFOL [Concomitant]
  7. SUCCINYLCHOLINE CHLORIDE [Concomitant]
  8. AMLODIPINE [Concomitant]
  9. BETA-INHALER [Concomitant]

REACTIONS (5)
  - ANAPHYLACTIC REACTION [None]
  - HYPOTENSION [None]
  - HYPOVENTILATION [None]
  - MYOCARDIAL INFARCTION [None]
  - SKIN TEST POSITIVE [None]
